FAERS Safety Report 23637061 (Version 1)
Quarter: 2024Q1

REPORT INFORMATION
  Report Type: Report from Study
  Country: US (occurrence: US)
  Receive Date: 20240315
  Receipt Date: 20240315
  Transmission Date: 20240409
  Serious: Yes (Death, Hospitalization)
  Sender: FDA-Public Use
  Company Number: US-PFIZER INC-PV202300112520

PATIENT
  Age: 84 Year
  Sex: Male

DRUGS (7)
  1. VYNDAMAX [Suspect]
     Active Substance: TAFAMIDIS
     Dosage: 61 MG, DAILY
     Route: 048
     Dates: start: 20210616
  2. VYNDAMAX [Suspect]
     Active Substance: TAFAMIDIS
     Dosage: 61 MG, 1X/DAY
     Route: 048
     Dates: end: 20240310
  3. ELIQUIS [Concomitant]
     Active Substance: APIXABAN
  4. EPLERENONE [Concomitant]
     Active Substance: EPLERENONE
  5. POTASSIUM [Concomitant]
     Active Substance: POTASSIUM
  6. TORSEMIDE [Concomitant]
     Active Substance: TORSEMIDE
  7. ULORIC [Concomitant]
     Active Substance: FEBUXOSTAT

REACTIONS (4)
  - Death [Fatal]
  - Product dose omission issue [Recovered/Resolved]
  - Cellulitis [Recovered/Resolved]
  - Malaise [Unknown]

NARRATIVE: CASE EVENT DATE: 20240310
